FAERS Safety Report 7019069-3 (Version None)
Quarter: 2010Q3

REPORT INFORMATION
  Report Type: 
  Country: None (occurrence: None)
  Receive Date: 20100928
  Receipt Date: 20100922
  Transmission Date: 20110219
  Serious: Yes (Disabling)
  Sender: FDA-Public Use
  Company Number: A0882641A

PATIENT
  Age: 24 Year
  Sex: Male

DRUGS (4)
  1. LAMOTRIGINE [Suspect]
     Indication: SLEEP DISORDER
     Dosage: 100MG AT NIGHT
     Route: 048
     Dates: start: 20100601, end: 20100921
  2. SEROQUEL [Concomitant]
  3. LEXAPRO [Concomitant]
  4. DIAZEPAM [Concomitant]

REACTIONS (1)
  - VISUAL IMPAIRMENT [None]
